FAERS Safety Report 14668729 (Version 1)
Quarter: 2018Q1

REPORT INFORMATION
  Report Type: Spontaneous
  Country: CA (occurrence: CA)
  Receive Date: 20180322
  Receipt Date: 20180322
  Transmission Date: 20180509
  Serious: Yes (Life-Threatening, Hospitalization, Other)
  Sender: FDA-Public Use
  Company Number: CA-BAYER-2018-051613

PATIENT
  Age: 40 Year
  Sex: Female
  Weight: 49.89 kg

DRUGS (2)
  1. MIRENA [Suspect]
     Active Substance: LEVONORGESTREL
     Indication: CONTRACEPTION
     Dosage: 20 MCG/24HR, CONT
  2. MIRENA [Suspect]
     Active Substance: LEVONORGESTREL
     Indication: CONTRACEPTION

REACTIONS (9)
  - Abdominal pain [Recovered/Resolved]
  - Intensive care [Recovered/Resolved]
  - Transfusion [Recovered/Resolved]
  - Heart valve incompetence [Recovered/Resolved]
  - Pregnancy with contraceptive device [Recovered/Resolved]
  - Hypotension [Recovered/Resolved]
  - Premature separation of placenta [Recovered/Resolved]
  - Uterine dilation and curettage [Recovered/Resolved]
  - Genital haemorrhage [Recovered/Resolved]
